FAERS Safety Report 4581744-8 (Version None)
Quarter: 2005Q1

REPORT INFORMATION
  Report Type: 
  Country: None (occurrence: None)
  Receive Date: 20050214
  Receipt Date: 20040224
  Transmission Date: 20050727
  Serious: No
  Sender: FDA-Public Use
  Company Number: US-GLAXOSMITHKLINE-A0499615A

PATIENT
  Sex: Female

DRUGS (5)
  1. LAMICTAL [Suspect]
     Indication: BIPOLAR DISORDER
     Dosage: 50MG TWICE PER DAY
     Route: 048
  2. AMBIEN [Concomitant]
  3. PAXIL CR [Concomitant]
  4. BUSPAR [Concomitant]
  5. ABILIFY [Concomitant]

REACTIONS (4)
  - BLOOD GLUCOSE INCREASED [None]
  - HEPATIC ENZYME INCREASED [None]
  - OEDEMA PERIPHERAL [None]
  - WEIGHT INCREASED [None]
